FAERS Safety Report 4679681-3 (Version None)
Quarter: 2005Q2

REPORT INFORMATION
  Report Type: 
  Country: None (occurrence: None)
  Receive Date: 20050602
  Receipt Date: 20050524
  Transmission Date: 20051028
  Serious: Yes (Hospitalization)
  Sender: FDA-Public Use
  Company Number: US-JNJFOC-20040404831

PATIENT
  Sex: Male

DRUGS (2)
  1. DURAGESIC-100 [Suspect]
     Route: 062
  2. DURAGESIC-100 [Suspect]
     Route: 062

REACTIONS (35)
  - ABNORMAL BEHAVIOUR [None]
  - ACUTE PSYCHOSIS [None]
  - ANOREXIA [None]
  - ANXIETY [None]
  - ASTHENIA [None]
  - BACK PAIN [None]
  - CLOSED HEAD INJURY [None]
  - DIZZINESS [None]
  - DRUG INEFFECTIVE [None]
  - DRUG WITHDRAWAL SYNDROME [None]
  - DYSPNOEA [None]
  - EMOTIONAL DISORDER [None]
  - FALL [None]
  - FEELING COLD [None]
  - FEELING HOT [None]
  - FEELING HOT AND COLD [None]
  - HALLUCINATIONS, MIXED [None]
  - HEADACHE [None]
  - INJURY [None]
  - INSOMNIA [None]
  - LACERATION [None]
  - LIBIDO DECREASED [None]
  - MAJOR DEPRESSION [None]
  - MENTAL DISORDER [None]
  - MIGRAINE [None]
  - MUSCLE SPASMS [None]
  - MYOCLONUS [None]
  - NAUSEA [None]
  - NECK INJURY [None]
  - NECK PAIN [None]
  - NERVOUSNESS [None]
  - PHARMACEUTICAL PRODUCT COMPLAINT [None]
  - POST PROCEDURAL COMPLICATION [None]
  - RENAL FAILURE CHRONIC [None]
  - SUICIDAL IDEATION [None]
